FAERS Safety Report 5567014-X (Version None)
Quarter: 2007Q4

REPORT INFORMATION
  Report Type: 
  Country: None (occurrence: None)
  Receive Date: 20071219
  Receipt Date: 20071212
  Transmission Date: 20080405
  Serious: Yes (Death, Hospitalization)
  Sender: FDA-Public Use
  Company Number: JP-ELI_LILLY_AND_COMPANY-JP200712003134

PATIENT
  Sex: Male
  Weight: 56 kg

DRUGS (3)
  1. GEMCITABINE HCL [Suspect]
     Indication: BILE DUCT CANCER
     Dosage: 1500 MG, OTHER
     Route: 042
     Dates: start: 20061208, end: 20070209
  2. DECADRON [Concomitant]
     Dosage: 4 MG, UNK
     Route: 042
     Dates: start: 20061208, end: 20070209
  3. ZOFRAN [Concomitant]
     Dosage: 1 D/F, UNK
     Route: 042
     Dates: start: 20061208, end: 20070209

REACTIONS (2)
  - MULTI-ORGAN FAILURE [None]
  - PNEUMONIA [None]
